FAERS Safety Report 15601920 (Version 1)
Quarter: 2018Q4

REPORT INFORMATION
  Report Type: Report from Study
  Country: IT (occurrence: IT)
  Receive Date: 20181109
  Receipt Date: 20181109
  Transmission Date: 20190205
  Serious: Yes (Other)
  Sender: FDA-Public Use
  Company Number: IT-TEVA-2018-IT-974084

PATIENT
  Sex: Female

DRUGS (3)
  1. PREDNISONE. [Suspect]
     Active Substance: PREDNISONE
     Indication: PEMPHIGUS
     Dosage: 50 MILLIGRAM DAILY;
     Route: 048
  2. AZATHIOPRINE. [Suspect]
     Active Substance: AZATHIOPRINE
     Indication: PEMPHIGUS
     Dosage: 100 MILLIGRAM DAILY;
     Route: 065
  3. CYCLOPHOSPHAMIDE. [Suspect]
     Active Substance: CYCLOPHOSPHAMIDE
     Indication: PEMPHIGUS
     Dosage: 100 MILLIGRAM DAILY;
     Route: 065

REACTIONS (2)
  - Kaposi^s sarcoma [Recovered/Resolved]
  - Human herpesvirus 8 infection [Recovered/Resolved]
